FAERS Safety Report 7119620-9 (Version None)
Quarter: 2010Q4

REPORT INFORMATION
  Report Type: 
  Country: None (occurrence: None)
  Receive Date: 20101123
  Receipt Date: 20101119
  Transmission Date: 20110411
  Serious: Yes (Other)
  Sender: FDA-Public Use
  Company Number: CA-BRISTOL-MYERS SQUIBB COMPANY-15177124

PATIENT
  Age: 45 Year
  Sex: Female

DRUGS (4)
  1. ORENCIA [Suspect]
     Indication: RHEUMATOID ARTHRITIS
     Dosage: LAST DOSE:02JUL2010,RECENT DOSE-04AUG2010,1SEP10 TOTAL INF:6
     Route: 042
     Dates: start: 20100429
  2. VENTOLIN [Suspect]
     Indication: ASTHMA
  3. TORADOL [Concomitant]
  4. METHOTREXATE [Concomitant]

REACTIONS (8)
  - ARTHRALGIA [None]
  - ASTHMA [None]
  - BACK PAIN [None]
  - CYSTITIS [None]
  - FATIGUE [None]
  - HEADACHE [None]
  - INSOMNIA [None]
  - OROPHARYNGEAL PAIN [None]
